FAERS Safety Report 11336944 (Version 3)
Quarter: 2015Q4

REPORT INFORMATION
  Report Type: Report from Study
  Country: JP (occurrence: JP)
  Receive Date: 20150804
  Receipt Date: 20151022
  Transmission Date: 20160304
  Serious: Yes (Hospitalization)
  Sender: FDA-Public Use
  Company Number: JP-EISAI MEDICAL RESEARCH-EC-2015-009281

PATIENT
  Age: 46 Year
  Sex: Female
  Weight: 43 kg

DRUGS (10)
  1. LENVIMA [Suspect]
     Active Substance: LENVATINIB
     Route: 048
     Dates: start: 20150724, end: 20150817
  2. URSO [Concomitant]
     Active Substance: URSODIOL
  3. LENVIMA [Suspect]
     Active Substance: LENVATINIB
     Route: 048
     Dates: start: 20151005, end: 20151018
  4. LENVIMA [Suspect]
     Active Substance: LENVATINIB
     Indication: THYROID CANCER
     Route: 048
     Dates: start: 20150703, end: 20150706
  5. OXYCONTIN [Concomitant]
     Active Substance: OXYCODONE HYDROCHLORIDE
  6. CELECOX [Concomitant]
     Active Substance: CELECOXIB
  7. RIVOTRIL [Concomitant]
     Active Substance: CLONAZEPAM
  8. MAGMITT [Concomitant]
     Active Substance: MAGNESIUM OXIDE
  9. AMLODIN [Concomitant]
     Active Substance: AMLODIPINE BESYLATE
  10. GASTER [Concomitant]
     Active Substance: FAMOTIDINE

REACTIONS (1)
  - Adrenal haemorrhage [Recovered/Resolved]

NARRATIVE: CASE EVENT DATE: 20150707
